FAERS Safety Report 6627091-1 (Version None)
Quarter: 2010Q1

REPORT INFORMATION
  Report Type: 
  Country: None (occurrence: None)
  Receive Date: 20100311
  Receipt Date: 20090807
  Transmission Date: 20100710
  Serious: No
  Sender: FDA-Public Use
  Company Number: A0801046A

PATIENT
  Age: 51 Year
  Sex: Male

DRUGS (3)
  1. NICORETTE [Suspect]
     Dates: start: 20090526
  2. ANTIHYPERTENSIVE [Concomitant]
  3. DIABETES MEDICATION [Concomitant]

REACTIONS (2)
  - CHEST DISCOMFORT [None]
  - DRUG INTERACTION [None]
